FAERS Safety Report 15609609 (Version 1)
Quarter: 2018Q4

REPORT INFORMATION
  Report Type: Spontaneous
  Country: BR (occurrence: BR)
  Receive Date: 20181113
  Receipt Date: 20181113
  Transmission Date: 20190205
  Serious: Yes (Death, Hospitalization, Other)
  Sender: FDA-Public Use
  Company Number: BR-ABBVIE-18K-020-2551743-00

PATIENT
  Age: 81 Year
  Sex: Male
  Weight: 70 kg

DRUGS (10)
  1. LACRIFILM [Concomitant]
     Active Substance: CARBOXYMETHYLCELLULOSE SODIUM
     Indication: PRODUCT USED FOR UNKNOWN INDICATION
  2. PROPRANOLOL [Concomitant]
     Active Substance: PROPRANOLOL HYDROCHLORIDE
     Indication: PRODUCT USED FOR UNKNOWN INDICATION
  3. PRIMID [Concomitant]
     Indication: PRODUCT USED FOR UNKNOWN INDICATION
  4. MESIDOX [Concomitant]
     Indication: PRODUCT USED FOR UNKNOWN INDICATION
  5. OCUPRESS [Concomitant]
     Active Substance: CARTEOLOL HYDROCHLORIDE
     Indication: INTRAOCULAR PRESSURE TEST
  6. DIPYRONE [Concomitant]
     Active Substance: DIPYRONE
     Indication: PRODUCT USED FOR UNKNOWN INDICATION
  7. TECNOMET [Concomitant]
     Active Substance: METHOTREXATE
     Indication: PRODUCT USED FOR UNKNOWN INDICATION
  8. HUMIRA [Suspect]
     Active Substance: ADALIMUMAB
     Indication: ANKYLOSING SPONDYLITIS
     Route: 058
     Dates: start: 201606, end: 20180926
  9. DRENATAN [Concomitant]
     Active Substance: LATANOPROST
     Indication: PRODUCT USED FOR UNKNOWN INDICATION
  10. GLIFAGE [Concomitant]
     Active Substance: METFORMIN HYDROCHLORIDE
     Indication: PRODUCT USED FOR UNKNOWN INDICATION

REACTIONS (26)
  - Respiratory failure [Fatal]
  - Hospitalisation [Not Recovered/Not Resolved]
  - Septic shock [Fatal]
  - Renal failure [Not Recovered/Not Resolved]
  - Fatigue [Not Recovered/Not Resolved]
  - Urinary tract infection [Unknown]
  - Gait inability [Not Recovered/Not Resolved]
  - C-reactive protein increased [Unknown]
  - Epistaxis [Unknown]
  - Mouth haemorrhage [Unknown]
  - Alanine aminotransferase abnormal [Unknown]
  - Platelet count decreased [Unknown]
  - Blood pressure abnormal [Recovered/Resolved]
  - Respiratory rate decreased [Not Recovered/Not Resolved]
  - Renal disorder [Unknown]
  - Blood urea abnormal [Unknown]
  - Blood creatinine abnormal [Unknown]
  - Pyrexia [Recovered/Resolved]
  - Blood pressure abnormal [Recovered/Resolved]
  - Aspartate aminotransferase abnormal [Unknown]
  - Glaucoma [Unknown]
  - Pyrexia [Unknown]
  - Peripheral swelling [Unknown]
  - Respiratory tract infection [Fatal]
  - Head discomfort [Recovered/Resolved]
  - Dysgeusia [Unknown]

NARRATIVE: CASE EVENT DATE: 20181005
